FAERS Safety Report 7404187-8 (Version None)
Quarter: 2011Q2

REPORT INFORMATION
  Report Type: 
  Country: None (occurrence: None)
  Receive Date: 20110408
  Receipt Date: 20110405
  Transmission Date: 20111010
  Serious: Yes (Death)
  Sender: FDA-Public Use
  Company Number: NL-B.I. PHARMACEUTICALS,INC./RIDGEFIELD-2011-NL-00151NL

PATIENT
  Sex: Female
  Weight: 78 kg

DRUGS (1)
  1. PRADAXA [Suspect]
     Indication: PROPHYLAXIS
     Dosage: 150 MG
     Dates: start: 20100928, end: 20101008

REACTIONS (2)
  - DEATH [None]
  - THROMBOCYTOPENIA [None]
